FAERS Safety Report 6152113-4 (Version None)
Quarter: 2009Q2

REPORT INFORMATION
  Report Type: 
  Country: None (occurrence: None)
  Receive Date: 20090410
  Receipt Date: 20090331
  Transmission Date: 20091009
  Serious: Yes (Hospitalization)
  Sender: FDA-Public Use
  Company Number: JP-SANOFI-SYNTHELABO-A01200816360

PATIENT
  Sex: Male
  Weight: 63 kg

DRUGS (27)
  1. SELBEX [Concomitant]
     Indication: GASTRITIS PROPHYLAXIS
     Dosage: 50 MG
     Route: 048
     Dates: start: 20081112
  2. DEPAS [Concomitant]
     Indication: INSOMNIA
     Dosage: 0.5 MG
     Route: 048
     Dates: start: 20081112
  3. BENZALIN [Concomitant]
     Indication: INSOMNIA
     Dosage: 5 MG
     Route: 048
     Dates: start: 20081112
  4. HACHIAZULE [Concomitant]
     Indication: STOMATITIS
     Dosage: 2 G
     Route: 048
     Dates: start: 20081029
  5. NU-LOTAN [Concomitant]
     Indication: HYPERTENSION
     Dosage: 50 MG
     Route: 048
     Dates: start: 20081015
  6. GASTER D [Concomitant]
     Route: 048
     Dates: start: 20080922
  7. NORVASC [Concomitant]
     Indication: HYPERTENSION
     Dosage: 2.5-5 MG
     Route: 048
     Dates: start: 20080917
  8. AMOBAN [Concomitant]
     Route: 048
     Dates: start: 20080822, end: 20080902
  9. MAGNESIUM SULFATE [Suspect]
     Indication: PREMEDICATION
     Dosage: 8 ML
     Route: 041
     Dates: start: 20080902, end: 20090107
  10. CALCICOL [Suspect]
     Indication: PREMEDICATION
     Dosage: 12 ML
     Route: 041
     Dates: start: 20080902, end: 20090107
  11. KYTRIL [Suspect]
     Indication: PREMEDICATION
     Dosage: 3 ML
     Route: 041
     Dates: start: 20080902, end: 20090107
  12. NASEA [Suspect]
     Indication: PREMEDICATION
     Dosage: 0.2 MG
     Route: 048
     Dates: start: 20080902, end: 20090108
  13. CONIEL [Concomitant]
     Route: 048
     Dates: start: 20090103, end: 20090120
  14. ITOROL [Concomitant]
     Dates: start: 20090103, end: 20090120
  15. ASPIRIN [Concomitant]
     Route: 048
     Dates: start: 20081208
  16. NITRODERM [Concomitant]
     Dosage: UNK
     Route: 065
     Dates: start: 20081206
  17. NITROPEN [Concomitant]
     Dosage: UNK
     Route: 065
     Dates: start: 20081206
  18. KARY UNI [Concomitant]
     Indication: CATARACT
     Dates: start: 20081110
  19. GASTER [Suspect]
     Indication: ALLERGY PROPHYLAXIS
     Route: 042
     Dates: start: 20081112
  20. POLARAMINE [Suspect]
     Indication: ALLERGY PROPHYLAXIS
     Route: 042
     Dates: start: 20081112
  21. DECADRON [Suspect]
     Indication: PROPHYLAXIS OF NAUSEA AND VOMITING
     Route: 048
     Dates: start: 20080917, end: 20090111
  22. FLUOROURACIL [Suspect]
     Indication: COLON CANCER
     Dosage: 400 MG/M2 BOLUS FOLLOWED BY 2400 MG/M2 INFUSION
     Route: 041
     Dates: start: 20081126, end: 20081126
  23. ISOVORIN [Suspect]
     Indication: COLON CANCER
     Dosage: 200 MG/M2
     Route: 041
     Dates: start: 20081126, end: 20081126
  24. AZD2171 (CEDIRINIB) [Suspect]
     Indication: COLON CANCER
     Dosage: UNK
     Route: 048
     Dates: start: 20080902
  25. ELPLAT [Suspect]
     Indication: COLON CANCER
     Dosage: 85 MG/M2
     Route: 042
     Dates: start: 20081126, end: 20081126
  26. AMOBAN [Suspect]
     Indication: INSOMNIA
     Dosage: UNK
     Route: 048
     Dates: start: 20081112
  27. DECADRON [Suspect]
     Indication: PREMEDICATION
     Dosage: 8 ML
     Route: 041
     Dates: start: 20080902, end: 20090107

REACTIONS (1)
  - PRINZMETAL ANGINA [None]
